FAERS Safety Report 7046909-4 (Version None)
Quarter: 2010Q4

REPORT INFORMATION
  Report Type: 
  Country: None (occurrence: None)
  Receive Date: 20101015
  Receipt Date: 20101011
  Transmission Date: 20110411
  Serious: Yes (Death, Hospitalization, Other)
  Sender: FDA-Public Use
  Company Number: PHFR2010GB02521

PATIENT
  Sex: Male

DRUGS (3)
  1. CLOZARIL [Suspect]
     Indication: SCHIZOPHRENIA
     Dosage: 300 MG, QD
     Route: 048
     Dates: start: 20060314
  2. AMISULPRIDE [Suspect]
  3. CLOZAPINE [Concomitant]

REACTIONS (21)
  - AGITATION [None]
  - BLADDER CANCER [None]
  - BLADDER OPERATION [None]
  - COMA SCALE ABNORMAL [None]
  - CONFUSIONAL STATE [None]
  - DEPRESSED LEVEL OF CONSCIOUSNESS [None]
  - DISORIENTATION [None]
  - INTESTINAL OBSTRUCTION [None]
  - MALAISE [None]
  - METASTASES TO KIDNEY [None]
  - NEUROLEPTIC MALIGNANT SYNDROME [None]
  - PNEUMONIA [None]
  - PYREXIA [None]
  - RENAL FAILURE [None]
  - RESECTION OF RECTUM [None]
  - SEPSIS [None]
  - SOMNOLENCE [None]
  - TACHYCARDIA [None]
  - TERMINAL STATE [None]
  - TRACHEOSTOMY [None]
  - URINARY TRACT OBSTRUCTION [None]
